FAERS Safety Report 4596279-6 (Version None)
Quarter: 2005Q1

REPORT INFORMATION
  Report Type: 
  Country: None (occurrence: None)
  Receive Date: 20050228
  Receipt Date: 20050215
  Transmission Date: 20050727
  Serious: Yes (Hospitalization)
  Sender: FDA-Public Use
  Company Number: 2005031233

PATIENT
  Age: 44 Year
  Sex: Female

DRUGS (1)
  1. SUDAFED 12 HOUR [Suspect]
     Indication: SINUS DISORDER
     Dosage: AS RECOMMENDED, ORAL
     Route: 048
     Dates: start: 20041115

REACTIONS (6)
  - HEART RATE IRREGULAR [None]
  - HYPERTENSION [None]
  - HYPOAESTHESIA [None]
  - MIOSIS [None]
  - MYOCARDIAL INFARCTION [None]
  - TREMOR [None]
